FAERS Safety Report 17491259 (Version 1)
Quarter: 2020Q1

REPORT INFORMATION
  Report Type: Spontaneous
  Country: US (occurrence: US)
  Receive Date: 20200303
  Receipt Date: 20200303
  Transmission Date: 20200409
  Serious: No
  Sender: FDA-Public Use
  Company Number: US-SA-2020SA054473

PATIENT
  Age: 51 Year
  Sex: Male

DRUGS (3)
  1. MOMETASONE [Concomitant]
     Active Substance: MOMETASONE
  2. SYMBICORT [Concomitant]
     Active Substance: BUDESONIDE\FORMOTEROL FUMARATE DIHYDRATE
  3. DUPIXENT [Suspect]
     Active Substance: DUPILUMAB
     Indication: NASAL POLYPS
     Dosage: 300 MG, QOW
     Route: 058
     Dates: start: 20200110

REACTIONS (1)
  - Rash [Unknown]

NARRATIVE: CASE EVENT DATE: 202002
